FAERS Safety Report 4989861-5 (Version None)
Quarter: 2006Q2

REPORT INFORMATION
  Report Type: 
  Country: None (occurrence: None)
  Receive Date: 20060503
  Receipt Date: 20060427
  Transmission Date: 20061013
  Serious: Yes (Other)
  Sender: FDA-Public Use
  Company Number: CA-AVENTIS-200614548GDDC

PATIENT
  Age: 45 Year
  Sex: Female

DRUGS (6)
  1. ARAVA [Suspect]
     Indication: RHEUMATOID ARTHRITIS
     Route: 048
     Dates: end: 20060301
  2. METHOTREXATE [Concomitant]
     Indication: RHEUMATOID ARTHRITIS
     Dosage: DOSE: UNK
     Route: 048
  3. MELOXICAM [Concomitant]
     Dosage: DOSE: UNK
     Route: 048
  4. CALCIUM GLUCONATE [Concomitant]
     Dosage: DOSE: UNK
     Route: 048
  5. TAGAMET [Concomitant]
     Dosage: DOSE: UNK
     Route: 048
  6. GLUCOSAMINE [Concomitant]
     Dosage: DOSE: UNK
     Route: 048

REACTIONS (4)
  - CYST [None]
  - DRUG INEFFECTIVE [None]
  - NEOPLASM [None]
  - SARCOMA [None]
